FAERS Safety Report 20563053 (Version 2)
Quarter: 2022Q1

REPORT INFORMATION
  Report Type: Report from Study
  Country: BR (occurrence: BR)
  Receive Date: 20220307
  Receipt Date: 20220325
  Transmission Date: 20220423
  Serious: Yes (Hospitalization)
  Sender: FDA-Public Use
  Company Number: BR-ABBVIE-22K-020-4300853-00

PATIENT
  Age: 67 Year
  Sex: Female
  Weight: 56.5 kg

DRUGS (1)
  1. RINVOQ [Suspect]
     Active Substance: UPADACITINIB
     Indication: Rheumatoid arthritis
     Route: 048
     Dates: start: 20210729, end: 20220222

REACTIONS (9)
  - Fistula [Unknown]
  - Meningitis [Recovering/Resolving]
  - Nausea [Not Recovered/Not Resolved]
  - Headache [Not Recovered/Not Resolved]
  - Vomiting [Unknown]
  - Malaise [Unknown]
  - Asthenia [Not Recovered/Not Resolved]
  - Cardiac disorder [Not Recovered/Not Resolved]
  - Fistula discharge [Unknown]

NARRATIVE: CASE EVENT DATE: 20220221
